FAERS Safety Report 7968081-6 (Version None)
Quarter: 2011Q4

REPORT INFORMATION
  Report Type: 
  Country: None (occurrence: None)
  Receive Date: 20111209
  Receipt Date: 20111207
  Transmission Date: 20120403
  Serious: Yes (Other)
  Sender: FDA-Public Use
  Company Number: US-PFIZER INC-2011299317

PATIENT
  Sex: Male
  Weight: 91 kg

DRUGS (3)
  1. LYRICA [Suspect]
     Indication: NEURALGIA
  2. HYDROCODONE [Concomitant]
     Dosage: UNK
  3. LYRICA [Suspect]
     Indication: NERVE INJURY
     Dosage: 75 MG, 2X/DAY
     Route: 048
     Dates: start: 20080101, end: 20110301

REACTIONS (3)
  - DRUG INEFFECTIVE [None]
  - WEIGHT INCREASED [None]
  - ALOPECIA [None]
